FAERS Safety Report 5225266-X (Version None)
Quarter: 2007Q1

REPORT INFORMATION
  Report Type: 
  Country: None (occurrence: None)
  Receive Date: 20070131
  Receipt Date: 20070129
  Transmission Date: 20070707
  Serious: Yes (Hospitalization)
  Sender: FDA-Public Use
  Company Number: 2007UW01734

PATIENT
  Age: 42 Year
  Sex: Female
  Weight: 81.6 kg

DRUGS (10)
  1. SEROQUEL [Suspect]
     Indication: BIPOLAR DISORDER
     Route: 048
     Dates: start: 20060901
  2. SEROQUEL [Suspect]
     Indication: ATTENTION DEFICIT/HYPERACTIVITY DISORDER
     Route: 048
     Dates: start: 20060901
  3. SEROQUEL [Suspect]
     Indication: BORDERLINE PERSONALITY DISORDER
     Route: 048
     Dates: start: 20060901
  4. GEODON [Concomitant]
  5. PROZAC [Concomitant]
  6. XANAX [Concomitant]
  7. LEVOTHYROXINE SODIUM [Concomitant]
  8. HYDROCORTISONE [Concomitant]
  9. ELMIRON [Concomitant]
  10. NAPROXEN [Concomitant]

REACTIONS (2)
  - SUICIDAL IDEATION [None]
  - WEIGHT INCREASED [None]
